FAERS Safety Report 4758004-5 (Version None)
Quarter: 2005Q3

REPORT INFORMATION
  Report Type: 
  Country: None (occurrence: None)
  Receive Date: 20050826
  Receipt Date: 20050518
  Transmission Date: 20060218
  Serious: No
  Sender: FDA-Public Use
  Company Number: WAES 0504USA02225

PATIENT
  Age: 80 Year
  Sex: Female

DRUGS (5)
  1. ZETIA [Suspect]
     Indication: BLOOD CHOLESTEROL INCREASED
     Dosage: 10 MG/DAILY/PO
     Route: 048
     Dates: start: 20040801
  2. ACCUPRIL [Concomitant]
  3. FOSAMAX [Concomitant]
  4. HUMALOG [Concomitant]
  5. PRAVACHOL [Concomitant]

REACTIONS (2)
  - ALBUMIN URINE PRESENT [None]
  - BLOOD ALBUMIN INCREASED [None]
